FAERS Safety Report 11563206 (Version 1)
Quarter: 2015Q3

REPORT INFORMATION
  Report Type: Spontaneous
  Country: US (occurrence: US)
  Receive Date: 20150916
  Receipt Date: 20150916
  Transmission Date: 20151125
  Serious: No
  Sender: FDA-Public Use
  Company Number: US-ELI_LILLY_AND_COMPANY-US200901003276

PATIENT
  Sex: Female

DRUGS (14)
  1. ALLEGRA [Concomitant]
     Active Substance: FEXOFENADINE HYDROCHLORIDE
     Dosage: 60 MG, AS NEEDED
  2. VITAMIN B NOS [Concomitant]
     Active Substance: VITAMIN B
     Dosage: 50 MG, 3/W
  3. VITAMIN D [Concomitant]
     Active Substance: CHOLECALCIFEROL
     Dosage: 800 MG, 2/D
  4. VITAMINS NOS [Concomitant]
     Active Substance: VITAMINS
     Dosage: UNK, 4/W
  5. FLAXSEED [Concomitant]
     Active Substance: FLAX SEED
     Dosage: 1200 MG, DAILY (1/D)
  6. VITAMIN C [Concomitant]
     Active Substance: ASCORBIC ACID
     Dosage: 500 MG, DAILY (1/D)
  7. CALCIUM CITRATE [Concomitant]
     Active Substance: CALCIUM CITRATE
     Dosage: 333 MG, 2/D
  8. TURMERIC [Concomitant]
     Active Substance: TURMERIC
     Dosage: UNK, 2/D
  9. PREVACID [Concomitant]
     Active Substance: LANSOPRAZOLE
     Dosage: 30 MG, DAILY (1/D)
  10. INOSITOL [Concomitant]
     Active Substance: INOSITOL
     Dosage: UNK, 2/D
  11. FORTEO [Suspect]
     Active Substance: TERIPARATIDE
     Indication: OSTEOPOROSIS
     Dosage: 20 UG, DAILY (1/D)
     Dates: start: 2008
  12. ADVIL [Concomitant]
     Active Substance: IBUPROFEN
     Dosage: UNK, AS NEEDED 2/D
  13. B COMPLEX                          /00212701/ [Concomitant]
     Dosage: 50 MG, 3/W
  14. FISH OIL [Concomitant]
     Active Substance: FISH OIL
     Dosage: 1200 MG, DAILY (1/D)

REACTIONS (3)
  - Anxiety [Unknown]
  - Injection site haemorrhage [Not Recovered/Not Resolved]
  - Musculoskeletal pain [Not Recovered/Not Resolved]

NARRATIVE: CASE EVENT DATE: 2008
